FAERS Safety Report 5279526-7 (Version None)
Quarter: 2007Q1

REPORT INFORMATION
  Report Type: 
  Country: None (occurrence: None)
  Receive Date: 20070322
  Receipt Date: 20070315
  Transmission Date: 20070707
  Serious: Yes (Life-Threatening, Hospitalization)
  Sender: FDA-Public Use
  Company Number: 15/07

PATIENT
  Age: 66 Year
  Sex: Male

DRUGS (5)
  1. SODIUM IODIDE I 131 [Suspect]
     Indication: METASTASES TO LUNG
  2. SODIUM IODIDE I 131 [Suspect]
     Indication: PAPILLARY THYROID CANCER
  3. CEFEPIME [Concomitant]
  4. CHLARYTHROMYCINE [Concomitant]
  5. METHYLPREDNISOLONE 16MG TAB [Concomitant]

REACTIONS (4)
  - BRADYCARDIA [None]
  - CYANOSIS [None]
  - HYPOVENTILATION [None]
  - MENTAL STATUS CHANGES [None]
